FAERS Safety Report 8205980-4 (Version None)
Quarter: 2012Q1

REPORT INFORMATION
  Report Type: 
  Country: None (occurrence: None)
  Receive Date: 20120313
  Receipt Date: 20120306
  Transmission Date: 20120608
  Serious: Yes (Other)
  Sender: FDA-Public Use
  Company Number: CHPA2012DE004387

PATIENT
  Age: 70 Year
  Sex: Female

DRUGS (1)
  1. NICOTINE [Suspect]
     Dosage: 2 MG, UNK
     Route: 048

REACTIONS (2)
  - INTENTIONAL DRUG MISUSE [None]
  - INCORRECT DRUG ADMINISTRATION DURATION [None]
